FAERS Safety Report 23815192 (Version 4)
Quarter: 2024Q2

REPORT INFORMATION
  Report Type: Spontaneous
  Country: DE (occurrence: DE)
  Receive Date: 20240503
  Receipt Date: 20240627
  Transmission Date: 20240715
  Serious: Yes (Other)
  Sender: FDA-Public Use
  Company Number: DE-AMGEN-DEUSP2024085377

PATIENT
  Age: 60 Year
  Sex: Female

DRUGS (1)
  1. PROLIA [Suspect]
     Active Substance: DENOSUMAB
     Indication: Product used for unknown indication
     Dosage: UNK
     Route: 065

REACTIONS (7)
  - Fractured sacrum [Unknown]
  - Spinal fracture [Unknown]
  - Pathological fracture [Unknown]
  - Radiotherapy [Unknown]
  - Renal failure [Unknown]
  - Breast cancer [Unknown]
  - Angiosclerosis [Unknown]
